FAERS Safety Report 24590425 (Version 1)
Quarter: 2024Q4

REPORT INFORMATION
  Report Type: Spontaneous
  Country: CA (occurrence: CA)
  Receive Date: 20241107
  Receipt Date: 20241107
  Transmission Date: 20250115
  Serious: Yes (Other)
  Sender: CELLTRION
  Company Number: CA-CELLTRION INC.-2024CA027077

PATIENT

DRUGS (22)
  1. TRASTUZUMAB [Suspect]
     Active Substance: TRASTUZUMAB
     Indication: Pancreatic carcinoma metastatic
  2. CAPECITABINE [Suspect]
     Active Substance: CAPECITABINE
     Indication: Pancreatic carcinoma metastatic
  3. DOCETAXEL [Suspect]
     Active Substance: DOCETAXEL
     Indication: Product used for unknown indication
  4. GEMCITABINE [Suspect]
     Active Substance: GEMCITABINE
     Indication: Pancreatic carcinoma metastatic
  5. KEYTRUDA [Suspect]
     Active Substance: PEMBROLIZUMAB
     Indication: Pancreatic carcinoma metastatic
  6. LORBRENA [Suspect]
     Active Substance: LORLATINIB
     Indication: Pancreatic carcinoma metastatic
  7. OXALIPLATIN [Suspect]
     Active Substance: OXALIPLATIN
     Indication: Pancreatic carcinoma metastatic
  8. PEMETREXED [Suspect]
     Active Substance: PEMETREXED
     Indication: Pancreatic carcinoma metastatic
  9. ALUNBRIG [Concomitant]
     Active Substance: BRIGATINIB
  10. CISPLATIN [Concomitant]
     Active Substance: CISPLATIN
     Route: 042
  11. ENHERTU [Concomitant]
     Active Substance: FAM-TRASTUZUMAB DERUXTECAN-NXKI
  12. FLUOROURACIL [Concomitant]
     Active Substance: FLUOROURACIL
  13. LEUCOVORIN [Concomitant]
     Active Substance: LEUCOVORIN\LEUCOVORIN CALCIUM
  14. IRINOTECAN HYDROCHLORIDE [Concomitant]
     Active Substance: IRINOTECAN HYDROCHLORIDE
  15. LIPIODOL ULTRA-FLUIDE [Concomitant]
     Active Substance: ETHIODIZED OIL
  16. MITOMYCIN [Concomitant]
     Active Substance: MITOMYCIN
  17. PACLITAXEL [Concomitant]
     Active Substance: PACLITAXEL
  18. BEVACIZUMAB [Concomitant]
     Active Substance: BEVACIZUMAB
     Route: 042
  19. DEMCIZUMAB [Concomitant]
     Active Substance: DEMCIZUMAB
  20. AMILOMER [Concomitant]
     Active Substance: AMILOMER
  21. OSIMERTINIB [Concomitant]
     Active Substance: OSIMERTINIB
  22. PERTUZUMAB [Concomitant]
     Active Substance: PERTUZUMAB

REACTIONS (1)
  - Pancytopenia [Unknown]
